FAERS Safety Report 12221293 (Version 1)
Quarter: 2016Q1

REPORT INFORMATION
  Report Type: Other
  Country: US (occurrence: US)
  Receive Date: 20160330
  Receipt Date: 20160330
  Transmission Date: 20160526
  Serious: No
  Sender: FDA-Public Use
  Company Number: US-MYLANLABS-2015M1019529

PATIENT
  Sex: Female

DRUGS (1)
  1. ESTRADIOL TRANSDERMAL SYSTEM [Suspect]
     Active Substance: ESTRADIOL
     Indication: HORMONE REPLACEMENT THERAPY
     Dosage: 0.025 MG, QD, CHANGED QWEEK
     Route: 062
     Dates: start: 20150120, end: 20150416

REACTIONS (6)
  - Pruritus generalised [Recovered/Resolved]
  - Rash [Recovered/Resolved]
  - Application site rash [Recovered/Resolved]
  - Ear swelling [Recovered/Resolved]
  - Eye swelling [Recovered/Resolved]
  - Sinus disorder [Recovered/Resolved]

NARRATIVE: CASE EVENT DATE: 201503
